FAERS Safety Report 13284401 (Version 2)
Quarter: 2017Q2

REPORT INFORMATION
  Report Type: Report from Study
  Country: TR (occurrence: TR)
  Receive Date: 20170301
  Receipt Date: 20170404
  Transmission Date: 20170830
  Serious: Yes (Death)
  Sender: FDA-Public Use
  Company Number: TR-PFIZER INC-2017042605

PATIENT
  Age: 62 Year
  Sex: Male
  Weight: 54 kg

DRUGS (5)
  1. MSB0010718C [Suspect]
     Active Substance: AVELUMAB
     Dosage: UNK
  2. MSB0010718C [Suspect]
     Active Substance: AVELUMAB
     Indication: NON-SMALL CELL LUNG CANCER
     Dosage: 500 MG, ONCE EVERY 2 WEEKS
     Route: 042
     Dates: start: 20161125
  3. CISPLATIN. [Suspect]
     Active Substance: CISPLATIN
     Indication: NON-SMALL CELL LUNG CANCER
     Dosage: 126 MG, UNK
     Route: 042
     Dates: start: 20161003, end: 20161024
  4. GEMCITABINE HYDROCHLORIDE. [Suspect]
     Active Substance: GEMCITABINE HYDROCHLORIDE
     Indication: NON-SMALL CELL LUNG CANCER
     Dosage: 1600 MG, UNK
     Route: 042
     Dates: start: 20161003, end: 20161101
  5. MSB0010718C [Suspect]
     Active Substance: AVELUMAB
     Dosage: 500 MG, ONCE EVERY 2 WEEKS
     Dates: end: 20161222

REACTIONS (1)
  - Pneumonia [Fatal]

NARRATIVE: CASE EVENT DATE: 20170113
